FAERS Safety Report 5357378-4 (Version None)
Quarter: 2007Q2

REPORT INFORMATION
  Report Type: 
  Country: None (occurrence: None)
  Receive Date: 20070614
  Receipt Date: 20070608
  Transmission Date: 20071010
  Serious: Yes (Hospitalization)
  Sender: FDA-Public Use
  Company Number: B0474626A

PATIENT
  Age: 76 Year
  Sex: Female

DRUGS (11)
  1. ARIXTRA [Suspect]
     Indication: DRUG USE FOR UNKNOWN INDICATION
     Dosage: 7.5MG PER DAY
     Route: 058
     Dates: start: 20061016, end: 20061102
  2. AUGMENTIN '125' [Concomitant]
     Dates: start: 20061016, end: 20061024
  3. GENTAMICIN [Concomitant]
     Dates: start: 20061016, end: 20061021
  4. VANCOMYCIN [Concomitant]
     Dates: start: 20061016, end: 20061021
  5. ZYVOX [Concomitant]
     Dates: start: 20061022, end: 20061030
  6. OMEPRAZOLE [Concomitant]
     Dates: start: 20061002
  7. NEXIUM [Concomitant]
     Dates: start: 20061002
  8. TRIATEC [Concomitant]
  9. PREVISCAN [Concomitant]
  10. ACTRAPID [Concomitant]
     Dates: start: 20061013, end: 20061029
  11. NOVONORM [Concomitant]
     Dates: start: 20061013, end: 20061029

REACTIONS (4)
  - EPISTAXIS [None]
  - HAEMOPTYSIS [None]
  - NAUSEA [None]
  - VOMITING [None]
